FAERS Safety Report 4552662-6 (Version None)
Quarter: 2005Q1

REPORT INFORMATION
  Report Type: 
  Country: None (occurrence: None)
  Receive Date: 20050114
  Receipt Date: 20050105
  Transmission Date: 20050727
  Serious: Yes (Hospitalization)
  Sender: FDA-Public Use
  Company Number: PHEH2005US00555

PATIENT
  Age: 9 Year
  Sex: Male
  Weight: 32 kg

DRUGS (3)
  1. RITALIN LA [Suspect]
     Indication: ATTENTION DEFICIT/HYPERACTIVITY DISORDER
     Dosage: 10 MG, UNK
     Route: 048
     Dates: start: 20041115
  2. STRATTERA [Concomitant]
     Dosage: 40 MG, QD
  3. RISPERDAL [Concomitant]
     Dosage: 0.5 MG, BID

REACTIONS (4)
  - ABNORMAL BEHAVIOUR [None]
  - AGGRESSION [None]
  - BIPOLAR DISORDER [None]
  - FIGHT IN SCHOOL [None]
